FAERS Safety Report 4427318-0 (Version None)
Quarter: 2004Q3

REPORT INFORMATION
  Report Type: 
  Country: None (occurrence: None)
  Receive Date: 20040813
  Receipt Date: 20040813
  Transmission Date: 20050211
  Serious: Yes (Life-Threatening, Hospitalization)
  Sender: FDA-Public Use
  Company Number: None

PATIENT
  Age: 47 Year
  Sex: Male
  Weight: 83 kg

DRUGS (2)
  1. RITUXIMAB 500 MG GENENTECH [Suspect]
     Indication: CHRONIC LYMPHOCYTIC LEUKAEMIA
     Dosage: 724 MG ONE TIME IV
     Route: 042
     Dates: start: 20040810, end: 20040810
  2. RITUXIMAB 500 MG GENENTECH [Suspect]

REACTIONS (6)
  - CHILLS [None]
  - DRUG HYPERSENSITIVITY [None]
  - DYSPNOEA [None]
  - HYPOTENSION [None]
  - RASH [None]
  - TACHYCARDIA [None]
